FAERS Safety Report 4897645-1 (Version None)
Quarter: 2006Q1

REPORT INFORMATION
  Report Type: 
  Country: None (occurrence: None)
  Receive Date: 20060201
  Receipt Date: 20051212
  Transmission Date: 20060701
  Serious: Yes (Hospitalization)
  Sender: FDA-Public Use
  Company Number: US-BRISTOL-MYERS SQUIBB COMPANY-13214168

PATIENT
  Age: 50 Year
  Sex: Male
  Weight: 83 kg

DRUGS (11)
  1. COUMADIN [Suspect]
     Indication: INTRACARDIAC THROMBUS
     Route: 048
     Dates: start: 20051014
  2. ENOXAPARIN SODIUM [Concomitant]
     Indication: ACUTE CORONARY SYNDROME
     Dosage: SC BOLUS 1 MG/KG (83 MG) ON 12-OCT-2005 FOLLOWED BY IV INFUSION 0.75 MG/KG (62.25MG) 13-OCT-2005
     Dates: start: 20051012, end: 20051013
  3. TIROFIBAN HCL [Concomitant]
     Indication: ACUTE CORONARY SYNDROME
     Dosage: IV BOLUS 0.4 MCG/KG/MIN ON 13-OCT-2005 FOLLOWED BY INFUSION OF 0.1 MCG/KG/MIN 13-OCT-05 TO 14-OCT-05
     Route: 040
     Dates: start: 20051013, end: 20051014
  4. LIPITOR [Concomitant]
  5. DIGOXIN [Concomitant]
  6. LASIX [Concomitant]
  7. COREG [Concomitant]
  8. BENAZEPRIL HCL [Concomitant]
  9. NITROGLYCERIN [Concomitant]
  10. ASPIRIN [Concomitant]
  11. PLAVIX [Concomitant]

REACTIONS (1)
  - SYNCOPE [None]
